FAERS Safety Report 15397153 (Version 1)
Quarter: 2018Q3

REPORT INFORMATION
  Report Type: Spontaneous
  Country: US (occurrence: US)
  Receive Date: 20180913
  Receipt Date: 20180913
  Transmission Date: 20181010
  Serious: Yes (Other)
  Sender: FDA-Public Use
  Company Number: None

PATIENT
  Age: 31 Year
  Sex: Female
  Weight: 102.06 kg

DRUGS (2)
  1. MIRENA [Suspect]
     Active Substance: LEVONORGESTREL
     Dates: start: 20170430, end: 20180911
  2. : PANTOPROPAZOLE [Concomitant]

REACTIONS (7)
  - Muscle spasms [None]
  - Anxiety [None]
  - Dyspareunia [None]
  - Haemorrhage [None]
  - Abdominal distension [None]
  - Fatigue [None]
  - Abdominal pain [None]

NARRATIVE: CASE EVENT DATE: 20170506
